FAERS Safety Report 8733936 (Version 2)
Quarter: 2012Q4

REPORT INFORMATION
  Report Type: 
  Country: FR (occurrence: FR)
  Receive Date: 20120821
  Receipt Date: 20120917
  Transmission Date: 20130627
  Serious: Yes (Hospitalization)
  Sender: FDA-Public Use
  Company Number: FR-SP-2012-07671

PATIENT
  Age: 77 Year
  Sex: Male
  Weight: 60 kg

DRUGS (1)
  1. IMMUCYST 81 MG [Suspect]
     Indication: BLADDER CANCER
     Route: 043
     Dates: start: 20120307, end: 20120718

REACTIONS (2)
  - Disseminated tuberculosis [Not Recovered/Not Resolved]
  - Pyrexia [Not Recovered/Not Resolved]
